FAERS Safety Report 8958632 (Version 1)
Quarter: 2012Q4

REPORT INFORMATION
  Report Type: Spontaneous
  Country: US (occurrence: None)
  Receive Date: 20121203
  Receipt Date: 20121203
  Transmission Date: 20130627
  Serious: Yes (Other)
  Sender: FDA-Public Use
  Company Number: 2008US-13259

PATIENT
  Age: 34 Year
  Sex: Female

DRUGS (4)
  1. TOPIRAMATE (TOPIRAMATE) [Suspect]
     Indication: MIGRAINE
  2. LEVOTHYROXINE (LEVOTHYROXINE) [Concomitant]
  3. METHYCLOTHIAZIDE (METHYCLOTHIAZIDE) [Concomitant]
  4. TRIAMTERNE (TRIAMTERENE) [Concomitant]

REACTIONS (4)
  - Angle closure glaucoma [None]
  - Blindness [None]
  - Headache [None]
  - No therapeutic response [None]
